FAERS Safety Report 10210589 (Version 5)
Quarter: 2014Q3

REPORT INFORMATION
  Report Type: Spontaneous
  Country: US (occurrence: US)
  Receive Date: 20140602
  Receipt Date: 20140827
  Transmission Date: 20150326
  Serious: Yes (Hospitalization, Other)
  Sender: FDA-Public Use
  Company Number: US-009507513-1406USA000462

PATIENT
  Sex: Female
  Weight: 67.12 kg

DRUGS (3)
  1. JANUVIA [Suspect]
     Active Substance: SITAGLIPTIN PHOSPHATE
     Indication: TYPE 2 DIABETES MELLITUS
     Dosage: 100 MG, QD
     Route: 048
     Dates: end: 20120423
  2. BYETTA [Suspect]
     Active Substance: EXENATIDE
     Indication: TYPE 2 DIABETES MELLITUS
     Dosage: 5 MCG/0.02 ML, BID
     Dates: start: 20120423, end: 20120507
  3. VITAMIN D [Concomitant]
     Active Substance: CHOLECALCIFEROL
     Indication: VITAMIN D DEFICIENCY
     Dosage: 1000 DF, UNK
     Dates: start: 20120217

REACTIONS (51)
  - Pancreatitis chronic [Not Recovered/Not Resolved]
  - Pancreatectomy [Unknown]
  - Sleep disorder [Unknown]
  - Neutropenia [Unknown]
  - Pancreatic duct dilatation [Unknown]
  - Rotator cuff syndrome [Unknown]
  - Nephrolithiasis [Unknown]
  - Bladder pain [Unknown]
  - Blood glucose increased [Unknown]
  - Stress [Unknown]
  - Chronic gastritis [Not Recovered/Not Resolved]
  - Peripheral sensory neuropathy [Unknown]
  - Hypochromasia [Unknown]
  - Surgery [Unknown]
  - Adnexa uteri mass [Unknown]
  - Spinal osteoarthritis [Unknown]
  - Iron deficiency anaemia [Unknown]
  - Pneumobilia [Unknown]
  - Bile duct stent insertion [Unknown]
  - Nephrolithiasis [Unknown]
  - Hypercholesterolaemia [Unknown]
  - Metastases to ovary [Unknown]
  - Metastases to liver [Unknown]
  - Umbilical hernia [Unknown]
  - Rib hypoplasia [Unknown]
  - Spondylolisthesis [Unknown]
  - Blood pressure orthostatic [Unknown]
  - Normochromic normocytic anaemia [Unknown]
  - Anaemia of chronic disease [Unknown]
  - Pancreatic carcinoma metastatic [Unknown]
  - Bile duct stenosis [Unknown]
  - Cholecystectomy [Unknown]
  - Metastases to gallbladder [Unknown]
  - Ovarian cancer [Unknown]
  - Metastasis [Unknown]
  - Pyrexia [Unknown]
  - Hysterectomy [Unknown]
  - Pulmonary mass [Unknown]
  - Amnesia [Unknown]
  - Vascular calcification [Unknown]
  - Diverticulum intestinal [Unknown]
  - Anxiety [Unknown]
  - Rotator cuff repair [Unknown]
  - Biliary sphincterotomy [Unknown]
  - Jejunostomy [Unknown]
  - Lumbar spinal stenosis [Unknown]
  - Hepatic steatosis [Unknown]
  - Large intestine polyp [Unknown]
  - Insomnia [Unknown]
  - Radiotherapy [Unknown]
  - Pollakiuria [Unknown]

NARRATIVE: CASE EVENT DATE: 20100317
